FAERS Safety Report 9129605 (Version 1)
Quarter: 2013Q1

REPORT INFORMATION
  Report Type: Report from Study
  Country: CA (occurrence: CA)
  Receive Date: 20130125
  Receipt Date: 20130125
  Transmission Date: 20140127
  Serious: Yes (Death)
  Sender: FDA-Public Use
  Company Number: CA-ROCHE-1183671

PATIENT
  Sex: Female
  Weight: 80 kg

DRUGS (7)
  1. ACTEMRA [Suspect]
     Indication: RHEUMATOID ARTHRITIS
     Route: 042
     Dates: start: 20101014, end: 20121213
  2. ACTEMRA [Suspect]
     Route: 042
     Dates: start: 20110810
  3. ADALAT [Concomitant]
  4. SYNTHROID [Concomitant]
  5. OMEPRAZOLE [Concomitant]
  6. APO-IBUPROFEN [Concomitant]
  7. ACTONEL [Concomitant]

REACTIONS (2)
  - Pancreatitis [Fatal]
  - Weight fluctuation [Unknown]
